FAERS Safety Report 7068933-8 (Version None)
Quarter: 2010Q4

REPORT INFORMATION
  Report Type: 
  Country: None (occurrence: None)
  Receive Date: 20101028
  Receipt Date: 20101022
  Transmission Date: 20110411
  Serious: Yes (Other)
  Sender: FDA-Public Use
  Company Number: PHHY2010IE59992

PATIENT
  Sex: Female

DRUGS (4)
  1. RASILEZ HCT [Suspect]
     Indication: HYPERTENSION
  2. ZOCOR [Concomitant]
     Indication: BLOOD CHOLESTEROL INCREASED
     Dosage: 10 MG, UNK
     Route: 048
  3. ASPIRIN [Concomitant]
     Indication: PROPHYLAXIS
     Dosage: 75 MG, UNK
     Route: 048
  4. CARDURA [Concomitant]
     Indication: BLOOD PRESSURE INCREASED
     Dosage: 8 MG, BID
     Route: 048

REACTIONS (1)
  - SYNCOPE [None]
